FAERS Safety Report 8184343-4 (Version None)
Quarter: 2012Q1

REPORT INFORMATION
  Report Type: 
  Country: None (occurrence: None)
  Receive Date: 20120305
  Receipt Date: 20120227
  Transmission Date: 20120608
  Serious: Yes (Congenital Anomaly, Other)
  Sender: FDA-Public Use
  Company Number: US-TEVA-325023USA

PATIENT

DRUGS (3)
  1. CARBAMAZEPINE [Suspect]
     Dosage: 800MG
     Route: 064
  2. VALPROIC ACID [Suspect]
     Dosage: 2000MG
     Route: 064
  3. PHENOBARBITAL TAB [Suspect]
     Dosage: 60MG
     Route: 064

REACTIONS (2)
  - CONGENITAL DIAPHRAGMATIC HERNIA [None]
  - VENTRICULAR SEPTAL DEFECT [None]
